FAERS Safety Report 4342146-2 (Version None)
Quarter: 2004Q1

REPORT INFORMATION
  Report Type: 
  Country: None (occurrence: None)
  Receive Date: 20040329
  Receipt Date: 20040216
  Transmission Date: 20041129
  Serious: No
  Sender: FDA-Public Use
  Company Number: 04P-163-0250548-00

PATIENT
  Age: 40 Year
  Sex: Female
  Weight: 117.4816 kg

DRUGS (13)
  1. HUMIRA [Suspect]
     Indication: PSORIATIC ARTHROPATHY
     Dosage: 40 MG, 1 IN 2 WK, SUBCUTANEOUS
     Route: 058
     Dates: start: 20031201
  2. GABAPENTIN [Concomitant]
  3. LORAZEPAM [Concomitant]
  4. SERTRALINE HYDROCHLORIDE [Concomitant]
  5. ALBUTEROL SULFATE [Concomitant]
  6. EPINEPHRINE [Concomitant]
  7. QUINAPRIL HYDROCHLORIDE [Concomitant]
  8. FAMOTIDINE [Concomitant]
  9. FOLIC ACID [Concomitant]
  10. METHOTREXATE SODIUM [Concomitant]
  11. GLIPIZIDE [Concomitant]
  12. INSULIN HUMAN [Concomitant]
  13. PREDNISONE [Concomitant]

REACTIONS (1)
  - DRUG INEFFECTIVE [None]
